FAERS Safety Report 4621578-9 (Version None)
Quarter: 2005Q1

REPORT INFORMATION
  Report Type: 
  Country: None (occurrence: None)
  Receive Date: 20050328
  Receipt Date: 20030618
  Transmission Date: 20050727
  Serious: Yes (Hospitalization)
  Sender: FDA-Public Use
  Company Number: 5469

PATIENT
  Age: 66 Year
  Sex: Female

DRUGS (3)
  1. FLUPHENAZINE [Suspect]
     Indication: SCHIZOPHRENIA
     Dosage: 25 MG FREQ UNK, IM
     Route: 030
     Dates: end: 20030523
  2. RISPERIDONE [Suspect]
     Indication: SCHIZOPHRENIA
     Dosage: 1 MG MANE/2 MG NOCTE, PO
     Route: 048
     Dates: start: 20030527, end: 20030527
  3. LORAZEPAM [Suspect]
     Dosage: 1 MG NOCTE, PO
     Route: 048
     Dates: start: 20030528

REACTIONS (3)
  - CONFUSIONAL STATE [None]
  - SEDATION [None]
  - URINARY TRACT INFECTION [None]
